FAERS Safety Report 9785650 (Version 1)
Quarter: 2013Q4

REPORT INFORMATION
  Report Type: Spontaneous
  Country: JP (occurrence: None)
  Receive Date: 20131224
  Receipt Date: 20131224
  Transmission Date: 20140711
  Serious: Yes (Hospitalization, Congenital Anomaly)
  Sender: FDA-Public Use
  Company Number: 2013/221

PATIENT
  Age: 2 Month
  Sex: Male
  Weight: 3.1 kg

DRUGS (1)
  1. VALPROIC ACID [Suspect]

REACTIONS (6)
  - Foetal anticonvulsant syndrome [None]
  - Tracheal stenosis [None]
  - Laryngeal web [None]
  - Maternal drugs affecting foetus [None]
  - Inguinal hernia [None]
  - Procedural haemorrhage [None]
